FAERS Safety Report 5632886-7 (Version None)
Quarter: 2008Q1

REPORT INFORMATION
  Report Type: 
  Country: None (occurrence: None)
  Receive Date: 20080213
  Receipt Date: 20080128
  Transmission Date: 20080703
  Serious: Yes (Hospitalization)
  Sender: FDA-Public Use
  Company Number: 8028086

PATIENT
  Age: 16 Year
  Sex: Male
  Weight: 32 kg

DRUGS (1)
  1. KEPPRA [Suspect]
     Indication: EPILEPSY
     Dosage: 500 MG 2/D PO
     Route: 048
     Dates: start: 20070712, end: 20070830

REACTIONS (6)
  - AGITATION [None]
  - ANOREXIA [None]
  - ANXIETY [None]
  - CRYING [None]
  - TREMOR [None]
  - VOMITING [None]
